FAERS Safety Report 17105305 (Version 1)
Quarter: 2019Q4

REPORT INFORMATION
  Report Type: Spontaneous
  Country: SE (occurrence: SE)
  Receive Date: 20191203
  Receipt Date: 20191203
  Transmission Date: 20200122
  Serious: Yes (Hospitalization)
  Sender: FDA-Public Use
  Company Number: SE-TEVA-2019-SE-1144717

PATIENT
  Age: 20 Year
  Sex: Female

DRUGS (2)
  1. LERGIGAN (PROMETHAZINE HYDROCHLORIDE) [Suspect]
     Active Substance: PROMETHAZINE HYDROCHLORIDE
     Dosage: 30 PCS LERGIGAN=750 MG
     Route: 048
     Dates: start: 20180627, end: 20180627
  2. QUETIAPINE. [Suspect]
     Active Substance: QUETIAPINE
     Route: 065
     Dates: start: 20180627, end: 20180627

REACTIONS (3)
  - Intentional overdose [Unknown]
  - Tachycardia [Unknown]
  - Intentional self-injury [Unknown]

NARRATIVE: CASE EVENT DATE: 20180627
